FAERS Safety Report 20032696 (Version 1)
Quarter: 2021Q4

REPORT INFORMATION
  Report Type: Spontaneous
  Country: NO (occurrence: NO)
  Receive Date: 20211104
  Receipt Date: 20211104
  Transmission Date: 20220303
  Serious: Yes (Other)
  Sender: FDA-Public Use
  Company Number: None

PATIENT
  Age: 68 Year
  Sex: Female

DRUGS (12)
  1. HUMIRA [Suspect]
     Active Substance: ADALIMUMAB
     Indication: Rheumatoid arthritis
     Route: 058
     Dates: start: 20190620, end: 20200512
  2. HYRIMOZ [Suspect]
     Active Substance: ADALIMUMAB-ADAZ
     Indication: Rheumatoid arthritis
     Route: 058
     Dates: start: 20200512, end: 2020
  3. HYRIMOZ [Suspect]
     Active Substance: ADALIMUMAB-ADAZ
     Route: 058
     Dates: start: 20200821, end: 20210122
  4. AMITRIPTYLINE HYDROCHLORIDE [Suspect]
     Active Substance: AMITRIPTYLINE HYDROCHLORIDE
     Indication: Pain
     Route: 065
     Dates: end: 202107
  5. NAPROXEN [Concomitant]
     Active Substance: NAPROXEN
     Indication: Arthralgia
     Dosage: 250-500 MG 1-2 TIMES PER DAY
     Route: 048
  6. VAGIFEM [Concomitant]
     Active Substance: ESTRADIOL
     Indication: Product used for unknown indication
     Dosage: 10 MG TWICE PER WEEK
     Route: 067
  7. ACETAMINOPHEN [Concomitant]
     Active Substance: ACETAMINOPHEN
     Indication: Pain
     Route: 048
  8. SPIRIVA [Concomitant]
     Active Substance: TIOTROPIUM BROMIDE MONOHYDRATE
     Indication: Asthma
     Route: 055
  9. FILGOTINIB [Concomitant]
     Active Substance: FILGOTINIB
     Indication: Rheumatoid arthritis
     Route: 048
     Dates: start: 202103
  10. ALBUTEROL [Concomitant]
     Active Substance: ALBUTEROL
     Indication: Asthma
     Dosage: 1-2 INHALATIONS (0.2 MG) WHEN NEEDED UP TO X 4
     Route: 055
  11. OMEPRAZOL BLUEFISH [Concomitant]
     Indication: Gastrooesophageal reflux disease
     Route: 048
  12. SEREVENT DISKUS [Concomitant]
     Active Substance: SALMETEROL XINAFOATE
     Indication: Asthma
     Route: 055

REACTIONS (13)
  - Pain [Recovering/Resolving]
  - Guillain-Barre syndrome [Recovering/Resolving]
  - Pain [Recovering/Resolving]
  - Urinary incontinence [Recovered/Resolved]
  - Muscular weakness [Recovering/Resolving]
  - Visual impairment [Unknown]
  - Hypoacusis [Unknown]
  - Bradycardia [Unknown]
  - Dizziness [Unknown]
  - Syncope [Unknown]
  - Joint instability [Unknown]
  - Joint vibration [Unknown]
  - Hyporeflexia [Not Recovered/Not Resolved]

NARRATIVE: CASE EVENT DATE: 20190101
